FAERS Safety Report 8521055-9 (Version None)
Quarter: 2012Q3

REPORT INFORMATION
  Report Type: 
  Country: None (occurrence: None)
  Receive Date: 20120719
  Receipt Date: 20120717
  Transmission Date: 20120928
  Serious: Yes (Life-Threatening)
  Sender: FDA-Public Use
  Company Number: JP-ROCHE-1064587

PATIENT
  Age: 70 Year
  Sex: Female

DRUGS (15)
  1. CYCLOPHOSPHAMIDE [Suspect]
     Indication: PRODUCT USED FOR UNKNOWN INDICATION
     Dosage: UNKNOWN
     Route: 065
  2. CYCLOPHOSPHAMIDE [Suspect]
     Dosage: 01 COURSE
     Route: 065
     Dates: start: 20080520, end: 20080524
  3. PREDNISOLONE [Suspect]
     Indication: PRODUCT USED FOR UNKNOWN INDICATION
     Dosage: UNKNOWN
     Route: 065
  4. CLADRIBINE [Suspect]
     Dosage: 03 COURSES
     Route: 065
     Dates: start: 20080617, end: 20080821
  5. DOXORUBICIN HYDROCHLORIDE [Suspect]
     Indication: PRODUCT USED FOR UNKNOWN INDICATION
     Dosage: 01 COURSE
     Route: 065
     Dates: start: 20080520, end: 20080524
  6. VINCRISTINE SULFATE [Suspect]
     Dosage: 01 COURSE
     Route: 065
     Dates: start: 20080520, end: 20080524
  7. MITOXANTRONE HYDROCHLORIDE [Suspect]
     Dosage: 03 COURSES
     Route: 065
     Dates: start: 20080617, end: 20080821
  8. CLADRIBINE [Suspect]
     Indication: PRODUCT USED FOR UNKNOWN INDICATION
     Dosage: UNKNOWN
     Route: 065
  9. MABTHERA [Suspect]
     Indication: PRODUCT USED FOR UNKNOWN INDICATION
     Dosage: UNKNOWN
     Route: 065
  10. MABTHERA [Suspect]
     Dosage: 08 COURSES
     Route: 065
     Dates: start: 20080711, end: 20081202
  11. IBRITUMOMAB TIUXETAN [Suspect]
     Indication: PRODUCT USED FOR UNKNOWN INDICATION
     Dosage: UNKNOWN
     Route: 065
     Dates: start: 20090408
  12. VINCRISTINE SULFATE [Suspect]
     Indication: PRODUCT USED FOR UNKNOWN INDICATION
     Dosage: UNKNOWN
     Route: 065
  13. MITOXANTRONE HYDROCHLORIDE [Suspect]
     Indication: PRODUCT USED FOR UNKNOWN INDICATION
     Dosage: UNKNOWN
     Route: 065
  14. MABTHERA [Suspect]
     Dosage: 03 COURSES
     Route: 065
     Dates: start: 20070111, end: 20070125
  15. PREDNISOLONE [Suspect]
     Dosage: 01 COURSE
     Route: 065
     Dates: start: 20080520, end: 20080524

REACTIONS (1)
  - MYELODYSPLASTIC SYNDROME [None]
